FAERS Safety Report 4971056-2 (Version None)
Quarter: 2006Q1

REPORT INFORMATION
  Report Type: 
  Country: None (occurrence: None)
  Receive Date: 20060202
  Receipt Date: 20051206
  Transmission Date: 20060701
  Serious: Yes (Other)
  Sender: FDA-Public Use
  Company Number: US-2005-023136

PATIENT
  Age: 33 Year
  Sex: Female
  Weight: 91 kg

DRUGS (2)
  1. MIRENA [Suspect]
     Dosage: 20 UG/DAY, CONT, INTRA-UTERINE
     Route: 015
     Dates: start: 20051019, end: 20051104
  2. PRENATAL VITAMINS (VITAMIN D NOS, MINERALS NOS, RETINOL, NICOTINIC ACI [Concomitant]

REACTIONS (7)
  - COMPLICATION OF DEVICE INSERTION [None]
  - DYSURIA [None]
  - FUNGAL INFECTION [None]
  - IUD MIGRATION [None]
  - SYNCOPE VASOVAGAL [None]
  - UTERINE CERVICAL LACERATION [None]
  - VAGINAL ODOUR [None]
